FAERS Safety Report 6430006-2 (Version None)
Quarter: 2009Q4

REPORT INFORMATION
  Report Type: 
  Country: None (occurrence: None)
  Receive Date: 20091103
  Receipt Date: 20091019
  Transmission Date: 20100525
  Serious: Yes (Hospitalization)
  Sender: FDA-Public Use
  Company Number: 02100-JPN-07-0173

PATIENT
  Age: 66 Year
  Sex: Male
  Weight: 63.3 kg

DRUGS (6)
  1. PLETAL [Suspect]
     Indication: CEREBRAL INFARCTION
     Dosage: 81 MG, QD, ORAL
     Route: 048
     Dates: start: 20060617, end: 20070401
  2. MEDET (METFORMIN HYDROCHLORIDE) TABLET [Concomitant]
  3. AMARYL [Concomitant]
  4. PRAVASTATIN SODIUM [Concomitant]
  5. LAXOBERON (SODIUM PICOSULFATE) TABLET [Concomitant]
  6. MAGNESIUM OXIDE (MAGNESIUM OXIDE) POWDER (EXCEPT (DPO] [Concomitant]

REACTIONS (1)
  - ATRIOVENTRICULAR BLOCK COMPLETE [None]
